FAERS Safety Report 12697315 (Version 1)
Quarter: 2016Q3

REPORT INFORMATION
  Report Type: Spontaneous
  Country: US (occurrence: US)
  Receive Date: 20160830
  Receipt Date: 20160830
  Transmission Date: 20161109
  Serious: Yes (Other)
  Sender: FDA-Public Use
  Company Number: US-JNJFOC-20160801535

PATIENT
  Sex: Female

DRUGS (1)
  1. REMICADE [Suspect]
     Active Substance: INFLIXIMAB
     Indication: BEHCET^S SYNDROME
     Dosage: TAKING FOR ABOUT 10 YEARS
     Route: 042

REACTIONS (7)
  - Deep vein thrombosis [Recovered/Resolved]
  - Product use issue [Unknown]
  - Antiphospholipid antibodies positive [Unknown]
  - Myalgia [Unknown]
  - Antinuclear antibody positive [Unknown]
  - Malaise [Recovering/Resolving]
  - Off label use [Unknown]
